FAERS Safety Report 7347863-8 (Version None)
Quarter: 2011Q1

REPORT INFORMATION
  Report Type: 
  Country: None (occurrence: None)
  Receive Date: 20110311
  Receipt Date: 20110307
  Transmission Date: 20110831
  Serious: Yes (Hospitalization, Other)
  Sender: FDA-Public Use
  Company Number: US-ABBOTT-11P-163-0709874-00

PATIENT
  Sex: Male
  Weight: 50.394 kg

DRUGS (3)
  1. HUMIRA [Suspect]
     Indication: ANKYLOSING SPONDYLITIS
  2. HUMIRA [Suspect]
     Indication: CROHN'S DISEASE
     Dates: start: 20100101
  3. MEGASE ES [Concomitant]
     Indication: PRODUCT USED FOR UNKNOWN INDICATION

REACTIONS (19)
  - ABDOMINAL PAIN [None]
  - LOCAL SWELLING [None]
  - HEADACHE [None]
  - PAIN IN EXTREMITY [None]
  - ABDOMINAL ADHESIONS [None]
  - PROCEDURAL PAIN [None]
  - NAUSEA [None]
  - CROHN'S DISEASE [None]
  - DECREASED APPETITE [None]
  - BLOOD SODIUM DECREASED [None]
  - GASTROINTESTINAL INFECTION [None]
  - POSTOPERATIVE WOUND INFECTION [None]
  - DIZZINESS [None]
  - GASTROINTESTINAL STOMA COMPLICATION [None]
  - ARTHRALGIA [None]
  - VOMITING [None]
  - DYSPNOEA [None]
  - ANKYLOSING SPONDYLITIS [None]
  - BACK PAIN [None]
